FAERS Safety Report 14940250 (Version 1)
Quarter: 2018Q2

REPORT INFORMATION
  Report Type: Report from Study
  Country: CA (occurrence: CA)
  Receive Date: 20180525
  Receipt Date: 20180525
  Transmission Date: 20180711
  Serious: Yes (Other)
  Sender: FDA-Public Use
  Company Number: CA-SA-2018SA119630

PATIENT
  Age: 50 Year
  Sex: Male

DRUGS (5)
  1. DUPILUMAB [Suspect]
     Active Substance: DUPILUMAB
     Indication: DERMATITIS ATOPIC
     Dosage: 600 MG,1X
     Route: 058
     Dates: start: 20180416, end: 20180416
  2. RUPALL [Concomitant]
     Indication: ANTIALLERGIC THERAPY
     Dosage: UNK UNK,QD
     Route: 048
  3. DUPILUMAB [Suspect]
     Active Substance: DUPILUMAB
     Dosage: 300 MG, QOW
     Route: 058
     Dates: end: 20180430
  4. DOXEPIN [Concomitant]
     Active Substance: DOXEPIN
     Dosage: UNK UNK,QD
     Route: 048
  5. ZOPICLONE [Concomitant]
     Active Substance: ZOPICLONE
     Indication: DEPRESSION
     Dosage: UNK UNK,QD
     Route: 048

REACTIONS (3)
  - Influenza like illness [Not Recovered/Not Resolved]
  - Pneumonia [Recovered/Resolved]
  - Influenza [Not Recovered/Not Resolved]

NARRATIVE: CASE EVENT DATE: 20180420
